FAERS Safety Report 13780862 (Version 1)
Quarter: 2017Q3

REPORT INFORMATION
  Report Type: Spontaneous
  Country: US (occurrence: US)
  Receive Date: 20170721
  Receipt Date: 20170721
  Transmission Date: 20171127
  Serious: Yes (Hospitalization)
  Sender: FDA-Public Use
  Company Number: None

PATIENT
  Age: 49 Year
  Sex: Male
  Weight: 117 kg

DRUGS (15)
  1. PHENTERMINE. [Concomitant]
     Active Substance: PHENTERMINE
  2. PROAIR HFA [Concomitant]
     Active Substance: ALBUTEROL SULFATE
  3. ALPRAZOLAM. [Concomitant]
     Active Substance: ALPRAZOLAM
  4. DEXILANT [Concomitant]
     Active Substance: DEXLANSOPRAZOLE
  5. TOPAMAX [Concomitant]
     Active Substance: TOPIRAMATE
  6. SYMBOCORT [Concomitant]
  7. CYMBALTA [Concomitant]
     Active Substance: DULOXETINE HYDROCHLORIDE
  8. SIMVASTATIN. [Concomitant]
     Active Substance: SIMVASTATIN
  9. TOPIRAMATE. [Suspect]
     Active Substance: TOPIRAMATE
     Indication: WEIGHT DECREASED
     Dosage: ?          OTHER STRENGTH:MG;QUANTITY:2 TABLET(S);?
     Route: 048
     Dates: start: 20170622, end: 20170704
  10. FLOMAX [Concomitant]
     Active Substance: TAMSULOSIN HYDROCHLORIDE
  11. HYDROCODONE [Concomitant]
     Active Substance: HYDROCODONE
  12. SEROQUEL [Concomitant]
     Active Substance: QUETIAPINE FUMARATE
  13. LYRICA [Concomitant]
     Active Substance: PREGABALIN
  14. AMBIEN [Concomitant]
     Active Substance: ZOLPIDEM TARTRATE
  15. LISINOPRIL. [Concomitant]
     Active Substance: LISINOPRIL

REACTIONS (5)
  - Migraine [None]
  - Loss of consciousness [None]
  - Acute kidney injury [None]
  - Blood pressure decreased [None]
  - Kidney infection [None]

NARRATIVE: CASE EVENT DATE: 20170704
